FAERS Safety Report 5925931-2 (Version None)
Quarter: 2008Q4

REPORT INFORMATION
  Report Type: 
  Country: None (occurrence: None)
  Receive Date: 20081021
  Receipt Date: 20081017
  Transmission Date: 20090506
  Serious: Yes (Hospitalization)
  Sender: FDA-Public Use
  Company Number: US-B.I. PHARMACEUTICALS,INC./RIDGEFIELD-2008-BP-15044BP

PATIENT
  Age: 35 Year
  Sex: Male
  Weight: 95 kg

DRUGS (4)
  1. MICARDIS HCT [Suspect]
     Indication: HYPERTENSION
     Dosage: 1ANZ
     Route: 048
     Dates: start: 20080923, end: 20080923
  2. DEPAKOTE [Concomitant]
     Dates: start: 20080923
  3. LEXAPRO [Concomitant]
     Dates: start: 20080923
  4. IMITREX [Concomitant]

REACTIONS (1)
  - CHEST PAIN [None]
